FAERS Safety Report 9751796 (Version 1)
Quarter: 2013Q4

REPORT INFORMATION
  Report Type: Spontaneous
  Country: US (occurrence: US)
  Receive Date: 20131213
  Receipt Date: 20131213
  Transmission Date: 20140711
  Serious: No
  Sender: FDA-Public Use
  Company Number: US-BIOGENIDEC-2013BI118391

PATIENT
  Sex: Female

DRUGS (1)
  1. TYSABRI [Suspect]
     Indication: MULTIPLE SCLEROSIS
     Route: 042
     Dates: start: 20091230

REACTIONS (13)
  - Gait disturbance [Unknown]
  - Balance disorder [Unknown]
  - Scan abnormal [Unknown]
  - Dysarthria [Unknown]
  - Aspiration [Unknown]
  - Neurogenic bladder [Unknown]
  - Gastrointestinal disorder [Unknown]
  - Spinocerebellar disorder [Unknown]
  - Spinal cord disorder [Unknown]
  - Coordination abnormal [Unknown]
  - Pneumonia [Unknown]
  - Asthenia [Unknown]
  - Multiple sclerosis [Unknown]
